FAERS Safety Report 18200229 (Version 1)
Quarter: 2020Q3

REPORT INFORMATION
  Report Type: Report from Study
  Country: CA (occurrence: CA)
  Receive Date: 20200826
  Receipt Date: 20200826
  Transmission Date: 20201103
  Serious: Yes (Other)
  Sender: FDA-Public Use
  Company Number: NVSC2020CA119285

PATIENT
  Age: 49 Year
  Sex: Female

DRUGS (7)
  1. HUMIRA [Concomitant]
     Active Substance: ADALIMUMAB
     Indication: PSORIATIC ARTHROPATHY
     Dosage: 1 DF, Q2W
     Route: 058
     Dates: start: 20190301, end: 20190730
  2. SULFASALAZINE. [Concomitant]
     Active Substance: SULFASALAZINE
     Indication: PRODUCT USED FOR UNKNOWN INDICATION
     Dosage: UNK
     Route: 065
  3. COSENTYX [Suspect]
     Active Substance: SECUKINUMAB
     Indication: PSORIATIC ARTHROPATHY
  4. COSENTYX [Suspect]
     Active Substance: SECUKINUMAB
     Indication: PSORIASIS
     Dosage: 300 MG, QMO
     Route: 058
     Dates: start: 20191122
  5. PLAQUENIL [Concomitant]
     Active Substance: HYDROXYCHLOROQUINE SULFATE
     Indication: PRODUCT USED FOR UNKNOWN INDICATION
     Dosage: UNK
     Route: 065
  6. METHOTREXATE. [Concomitant]
     Active Substance: METHOTREXATE
     Indication: PRODUCT USED FOR UNKNOWN INDICATION
     Dosage: UNK
     Route: 065
  7. HUMIRA [Concomitant]
     Active Substance: ADALIMUMAB
     Dosage: 1 DF, QW
     Route: 058
     Dates: start: 20190730

REACTIONS (19)
  - Fungal infection [Unknown]
  - Anal fissure [Not Recovered/Not Resolved]
  - Insomnia [Unknown]
  - Pain [Unknown]
  - Pain in extremity [Unknown]
  - Eyelid skin dryness [Unknown]
  - Oral candidiasis [Not Recovered/Not Resolved]
  - Haemorrhoidal haemorrhage [Unknown]
  - Constipation [Unknown]
  - Gait disturbance [Unknown]
  - Inflammation [Unknown]
  - Psoriasis [Unknown]
  - Flatulence [Unknown]
  - Diarrhoea [Unknown]
  - Crohn^s disease [Unknown]
  - Psoriatic arthropathy [Unknown]
  - Eructation [Unknown]
  - Vulvovaginal injury [Unknown]
  - Haemorrhoids [Unknown]

NARRATIVE: CASE EVENT DATE: 202005
